FAERS Safety Report 6088759-1 (Version None)
Quarter: 2009Q1

REPORT INFORMATION
  Report Type: 
  Country: None (occurrence: None)
  Receive Date: 20090219
  Receipt Date: 20090210
  Transmission Date: 20090719
  Serious: Yes (Hospitalization)
  Sender: FDA-Public Use
  Company Number: 2009AL000876

PATIENT
  Age: 20 Year
  Sex: Female

DRUGS (6)
  1. FERROUS SUL ELX [Suspect]
  2. ZOPICLONE [Concomitant]
  3. PIPOTIAZINE [Concomitant]
  4. KALETRA [Concomitant]
  5. COMBIVIR [Concomitant]
  6. DULOXETINE [Concomitant]

REACTIONS (9)
  - BRADYPHRENIA [None]
  - CLONUS [None]
  - FEELING HOT [None]
  - HYPERREFLEXIA [None]
  - MOVEMENT DISORDER [None]
  - NEUROLEPTIC MALIGNANT SYNDROME [None]
  - SEROTONIN SYNDROME [None]
  - SPEECH DISORDER [None]
  - TREMOR [None]
